FAERS Safety Report 4319147-3 (Version None)
Quarter: 2004Q1

REPORT INFORMATION
  Report Type: 
  Country: None (occurrence: None)
  Receive Date: 20040316
  Receipt Date: 20040226
  Transmission Date: 20041129
  Serious: Yes (Hospitalization)
  Sender: FDA-Public Use
  Company Number: JP_040302706

PATIENT
  Age: 75 Year
  Sex: Female
  Weight: 50 kg

DRUGS (8)
  1. HUMALOG [Suspect]
     Indication: DIABETES MELLITUS NON-INSULIN-DEPENDENT
     Dosage: 8 U/3 DAY
     Dates: start: 20021031
  2. CONIEL (BENIDIPINE HYDROCHLORIDE) [Concomitant]
  3. CALOMIDE (COBAMAMIDE) [Concomitant]
  4. PRIMPERAN TAB [Concomitant]
  5. DOXAZOSIN MESYLATE [Concomitant]
  6. BLOPRESS (CANDESARTAN CILEXETIL) [Concomitant]
  7. CHOLEBINE (COLESTILAN) [Concomitant]
  8. EPADEL (ETHYL ICOSAPENTATE) [Concomitant]

REACTIONS (4)
  - BLOOD GLUCOSE INCREASED [None]
  - DIABETES MELLITUS [None]
  - DIARRHOEA [None]
  - GLYCOSYLATED HAEMOGLOBIN INCREASED [None]
